FAERS Safety Report 8591499-8 (Version None)
Quarter: 2012Q3

REPORT INFORMATION
  Report Type: 
  Country: None (occurrence: None)
  Receive Date: 20120814
  Receipt Date: 20120806
  Transmission Date: 20120928
  Serious: Yes (Other)
  Sender: FDA-Public Use
  Company Number: US-SANOFI-AVENTIS-2012SA056393

PATIENT
  Age: 75 Year
  Sex: Male

DRUGS (10)
  1. GABAPENTIN [Concomitant]
  2. PLAVIX [Suspect]
     Route: 065
     Dates: start: 20060101
  3. VITAMIN D [Concomitant]
  4. METFORMIN HYDROCHLORIDE [Concomitant]
  5. TYLENOL [Concomitant]
  6. ESOMEPRAZOLE [Suspect]
     Route: 065
     Dates: start: 20070101
  7. NAPROXEN [Concomitant]
  8. GEMFIBROZIL [Concomitant]
  9. AMITRIPTYLINE HCL [Concomitant]
  10. GLUCOSAMINE [Concomitant]

REACTIONS (1)
  - ARTERIAL OCCLUSIVE DISEASE [None]
